FAERS Safety Report 5933197-2 (Version None)
Quarter: 2008Q4

REPORT INFORMATION
  Report Type: 
  Country: None (occurrence: None)
  Receive Date: 20081028
  Receipt Date: 20081024
  Transmission Date: 20090506
  Serious: Yes (Other)
  Sender: FDA-Public Use
  Company Number: CH-GENENTECH-268800

PATIENT
  Sex: Female

DRUGS (5)
  1. RAPTIVA [Suspect]
     Indication: PSORIASIS
     Dosage: 1 MG/KG, 1/WEEK
     Route: 058
     Dates: start: 20071113, end: 20071127
  2. DAIVOBET [Concomitant]
     Indication: PSORIASIS
     Dosage: 2-3X/WEEK
  3. HALCINONIDE [Concomitant]
     Indication: PSORIASIS
     Dosage: 2-3X/WEEK
  4. NEXIUM [Concomitant]
     Indication: DRUG USE FOR UNKNOWN INDICATION
     Dosage: UNK
  5. NICOTINE [Concomitant]
     Indication: DRUG USE FOR UNKNOWN INDICATION
     Dosage: UNK

REACTIONS (4)
  - BLASTOMYCOSIS [None]
  - EPIGASTRIC DISCOMFORT [None]
  - PSORIASIS [None]
  - TUBERCULOSIS [None]
